FAERS Safety Report 10943609 (Version 4)
Quarter: 2015Q4

REPORT INFORMATION
  Report Type: Spontaneous
  Country: US (occurrence: US)
  Receive Date: 20150322
  Receipt Date: 20151113
  Transmission Date: 20160304
  Serious: No
  Sender: FDA-Public Use
  Company Number: US-JNJFOC-20141014133

PATIENT
  Sex: Male

DRUGS (2)
  1. RISPERDAL [Suspect]
     Active Substance: RISPERIDONE
     Indication: DEPRESSION
     Route: 048
     Dates: start: 1998, end: 2000
  2. RISPERDAL [Suspect]
     Active Substance: RISPERIDONE
     Indication: PSYCHOTIC DISORDER
     Route: 048
     Dates: start: 1998, end: 2000

REACTIONS (6)
  - Gastric disorder [Unknown]
  - Gynaecomastia [Unknown]
  - Obesity [Unknown]
  - Galactorrhoea [Unknown]
  - Emotional disorder [Unknown]
  - Dyspepsia [Unknown]
